FAERS Safety Report 16135056 (Version 1)
Quarter: 2019Q1

REPORT INFORMATION
  Report Type: Other
  Country: ES (occurrence: ES)
  Receive Date: 20190329
  Receipt Date: 20190329
  Transmission Date: 20190418
  Serious: Yes (Hospitalization)
  Sender: FDA-Public Use
  Company Number: ES-VALIDUS PHARMACEUTICALS LLC-ES-2019VAL000173

PATIENT

DRUGS (6)
  1. LEVOTIROXINA                       /00068001/ [Concomitant]
     Indication: HYPOTHYROIDISM
     Dosage: 50 ?G, QD
     Route: 048
  2. LORMETAZEPAM [Concomitant]
     Active Substance: LORMETAZEPAM
     Indication: INSOMNIA
     Dosage: 1 MG, QD
     Route: 048
  3. ROCALTROL [Suspect]
     Active Substance: CALCITRIOL
     Indication: HYPOPARATHYROIDISM
     Dosage: 0.5 ?G, QD
     Route: 048
     Dates: start: 2016, end: 20180923
  4. NATECAL [Suspect]
     Active Substance: CALCIUM CARBONATE\CHOLECALCIFEROL
     Indication: HYPOPARATHYROIDISM
     Dosage: 1.8 G, QD
     Route: 048
     Dates: start: 2016, end: 20180923
  5. RIVAROXABAN [Concomitant]
     Active Substance: RIVAROXABAN
     Indication: ATRIAL FIBRILLATION
     Dosage: 20 MG, QD
     Route: 048
  6. CITALOPRAM [Concomitant]
     Active Substance: CITALOPRAM HYDROBROMIDE
     Indication: DEPRESSION
     Dosage: 20 MG, QD
     Route: 048

REACTIONS (3)
  - Hypercalcaemia [Recovered/Resolved]
  - Acute kidney injury [Recovered/Resolved]
  - Drug interaction [Unknown]

NARRATIVE: CASE EVENT DATE: 20180919
